FAERS Safety Report 10033608 (Version 2)
Quarter: 2014Q2

REPORT INFORMATION
  Report Type: Spontaneous
  Country: US (occurrence: US)
  Receive Date: 20140325
  Receipt Date: 20140421
  Transmission Date: 20141212
  Serious: No
  Sender: FDA-Public Use
  Company Number: US-BIOGENIDEC-2014BI023167

PATIENT
  Age: 50 Year
  Sex: Female

DRUGS (1)
  1. TECFIDERA [Suspect]
     Indication: MULTIPLE SCLEROSIS

REACTIONS (5)
  - Gastrointestinal disorder [Unknown]
  - Urinary tract infection [Unknown]
  - Fungal infection [Unknown]
  - Drug ineffective [Unknown]
  - Endodontic procedure [Recovered/Resolved]
